FAERS Safety Report 13699731 (Version 2)
Quarter: 2017Q2

REPORT INFORMATION
  Report Type: Report from Study
  Country: None (occurrence: AT)
  Receive Date: 20170629
  Receipt Date: 20170630
  Transmission Date: 20170830
  Serious: Yes (Death)
  Sender: FDA-Public Use
  Company Number: AT-ABBVIE-17K-009-2006496-00

PATIENT
  Age: 70 Year
  Sex: Male

DRUGS (6)
  1. DUODOPA [Suspect]
     Active Substance: CARBIDOPA\LEVODOPA
     Indication: PARKINSON^S DISEASE
     Dosage: MD: 7.5 ML?CR DAYTIME: 2.2 ML/H?ED: 1.5 ML
     Route: 050
     Dates: start: 20081105
  2. PANTOLOC [Concomitant]
     Active Substance: PANTOPRAZOLE SODIUM
     Indication: PRODUCT USED FOR UNKNOWN INDICATION
  3. DUODOPA [Suspect]
     Active Substance: CARBIDOPA\LEVODOPA
     Dosage: 16 H THERAPY:?MD: 7.5 ML?CR DAYTIME: 2.2 ML/H?ED: 1.5 ML
     Route: 050
     Dates: end: 201706
  4. DUODOPA [Suspect]
     Active Substance: CARBIDOPA\LEVODOPA
     Dosage: CR DAYTIME: 1.8 ML/H
     Route: 050
     Dates: start: 201706, end: 20170615
  5. LEPONEX [Concomitant]
     Active Substance: CLOZAPINE
     Indication: DEMENTIA
  6. MOTILIUM [Concomitant]
     Active Substance: DOMPERIDONE
     Indication: PRODUCT USED FOR UNKNOWN INDICATION

REACTIONS (6)
  - Dementia [Unknown]
  - Death [Fatal]
  - Hyperkinesia [Unknown]
  - Dyskinesia [Unknown]
  - Decreased appetite [Unknown]
  - Weight decreased [Unknown]

NARRATIVE: CASE EVENT DATE: 201706
